FAERS Safety Report 17828763 (Version 3)
Quarter: 2020Q3

REPORT INFORMATION
  Report Type: Report from Study
  Country: None (occurrence: US)
  Receive Date: 20200527
  Receipt Date: 20200911
  Transmission Date: 20201102
  Serious: Yes (Other)
  Sender: FDA-Public Use
  Company Number: US-BIOVITRUM-2020US1151

PATIENT
  Age: 60 Year
  Sex: Female

DRUGS (2)
  1. KINERET [Suspect]
     Active Substance: ANAKINRA
     Route: 058
     Dates: start: 20190510
  2. KINERET [Suspect]
     Active Substance: ANAKINRA
     Indication: STILL^S DISEASE
     Route: 058
     Dates: start: 20190508

REACTIONS (8)
  - Red blood cell sedimentation rate increased [Unknown]
  - Off label use [Unknown]
  - Cough [Unknown]
  - Autoimmune disorder [Unknown]
  - Hypergammaglobulinaemia benign monoclonal [Unknown]
  - Haemoglobin abnormal [Unknown]
  - Influenza [Unknown]
  - Vitamin D deficiency [Unknown]

NARRATIVE: CASE EVENT DATE: 20190508
